FAERS Safety Report 7943124-4 (Version None)
Quarter: 2011Q4

REPORT INFORMATION
  Report Type: 
  Country: None (occurrence: None)
  Receive Date: 20111128
  Receipt Date: 20111115
  Transmission Date: 20120403
  Serious: Yes (Other)
  Sender: FDA-Public Use
  Company Number: PHEH2011US03996

PATIENT
  Sex: Female

DRUGS (3)
  1. COUMADIN [Suspect]
  2. EXJADE [Suspect]
     Dosage: 1500 MG, QD
     Route: 048
  3. DIURETICS [Suspect]

REACTIONS (5)
  - HAEMORRHAGE [None]
  - NAUSEA [None]
  - FEELING ABNORMAL [None]
  - FATIGUE [None]
  - POLLAKIURIA [None]
